FAERS Safety Report 8129880-3 (Version None)
Quarter: 2012Q1

REPORT INFORMATION
  Report Type: 
  Country: None (occurrence: None)
  Receive Date: 20120210
  Receipt Date: 20111114
  Transmission Date: 20120608
  Serious: No
  Sender: FDA-Public Use
  Company Number: US-COVIDIEN/TYCO HEALTHCARE/MALLINCKRODT-T201102653

PATIENT
  Age: 57 Year
  Sex: Female
  Weight: 113.38 kg

DRUGS (3)
  1. IBUPROFEN [Concomitant]
     Indication: PAIN
     Dosage: 800 MG, PRN
  2. PENNSAID [Suspect]
     Indication: BURSITIS
     Dosage: 10 GTT, ONE TIME DOSE
     Route: 061
     Dates: start: 20111109, end: 20111109
  3. LIDODERM [Concomitant]
     Dosage: UNK

REACTIONS (4)
  - HYPERTENSION [None]
  - DIARRHOEA [None]
  - NAUSEA [None]
  - VOMITING [None]
